FAERS Safety Report 9974977 (Version 1)
Quarter: 2014Q1

REPORT INFORMATION
  Report Type: Report from Study
  Country: US (occurrence: US)
  Receive Date: 20140306
  Receipt Date: 20140306
  Transmission Date: 20141002
  Serious: No
  Sender: FDA-Public Use
  Company Number: US-ABBVIE-13P-163-1159305-00

PATIENT
  Age: 37 Year
  Sex: Female

DRUGS (19)
  1. HUMIRA [Suspect]
     Indication: PSORIATIC ARTHROPATHY
     Dates: start: 20130924
  2. LORTAB [Concomitant]
     Indication: PSORIATIC ARTHROPATHY
  3. PRAVASTATIN [Concomitant]
     Indication: BLOOD CHOLESTEROL INCREASED
  4. CYMBALTA [Concomitant]
     Indication: DEPRESSION
  5. CYMBALTA [Concomitant]
     Indication: FIBROMYALGIA
  6. PROTONIX [Concomitant]
     Indication: GASTROOESOPHAGEAL REFLUX DISEASE
  7. VITAMIN D [Concomitant]
     Indication: PRODUCT USED FOR UNKNOWN INDICATION
  8. TOPAMAX [Concomitant]
     Indication: AGITATION
  9. RISPERIDONE [Concomitant]
     Indication: IRRITABILITY
  10. METFORMIN [Concomitant]
     Indication: GLUCOSE TOLERANCE IMPAIRED
  11. VOL TAB RX [Concomitant]
     Indication: VITAMIN SUPPLEMENTATION
  12. OXYBUTYNIN [Concomitant]
     Indication: HYPERTONIC BLADDER
  13. FOLIC ACID [Concomitant]
     Indication: PRODUCT USED FOR UNKNOWN INDICATION
  14. NITROGLYCERIN [Concomitant]
     Indication: OESOPHAGEAL SPASM
  15. GABAPENTIN [Concomitant]
     Indication: PAIN
  16. GABAPENTIN [Concomitant]
     Indication: INTERVERTEBRAL DISC DEGENERATION
  17. GABAPENTIN [Concomitant]
     Indication: PAIN
  18. CALCIPOTRIENE [Concomitant]
     Indication: PSORIASIS
     Dosage: DAILY
  19. MOMETASONE FUROATE [Concomitant]
     Indication: PSORIASIS

REACTIONS (3)
  - Device malfunction [Not Recovered/Not Resolved]
  - Meralgia paraesthetica [Recovering/Resolving]
  - Drug dose omission [Not Recovered/Not Resolved]
